FAERS Safety Report 5790321-2 (Version None)
Quarter: 2008Q2

REPORT INFORMATION
  Report Type: 
  Country: None (occurrence: None)
  Receive Date: 20080626
  Receipt Date: 20080401
  Transmission Date: 20081010
  Serious: No
  Sender: FDA-Public Use
  Company Number: A0708539A

PATIENT
  Sex: Female

DRUGS (2)
  1. ALLI [Suspect]
  2. LEVOTHYROXINE SODIUM [Concomitant]

REACTIONS (21)
  - ABDOMINAL DISTENSION [None]
  - ABDOMINAL PAIN UPPER [None]
  - ASTHENIA [None]
  - BACK DISORDER [None]
  - CHANGE OF BOWEL HABIT [None]
  - CONSTIPATION [None]
  - DIZZINESS [None]
  - DRUG INEFFECTIVE [None]
  - EXERCISE TOLERANCE DECREASED [None]
  - FATIGUE [None]
  - FLATULENCE [None]
  - FRUSTRATION [None]
  - GASTROINTESTINAL DISORDER [None]
  - HUNGER [None]
  - MALAISE [None]
  - MUSCLE SPASMS [None]
  - PHARYNGITIS STREPTOCOCCAL [None]
  - PHARYNGOLARYNGEAL PAIN [None]
  - SINUSITIS [None]
  - SLUGGISHNESS [None]
  - WEIGHT INCREASED [None]
